FAERS Safety Report 7409720-8 (Version None)
Quarter: 2011Q2

REPORT INFORMATION
  Report Type: 
  Country: None (occurrence: None)
  Receive Date: 20110407
  Receipt Date: 20110407
  Transmission Date: 20111010
  Serious: Yes (Hospitalization, Other)
  Sender: FDA-Public Use
  Company Number: None

PATIENT
  Age: 8 Year
  Sex: Female
  Weight: 36.2878 kg

DRUGS (1)
  1. PERMETHRIN [Suspect]
     Indication: ACARODERMATITIS
     Dosage: 2.2 OZ APPLY EVERY8 TO 14 TOP
     Route: 061
     Dates: start: 20110325, end: 20110326

REACTIONS (4)
  - CONVULSION [None]
  - PRODUCT LABEL ISSUE [None]
  - HYPERSENSITIVITY [None]
  - VOMITING [None]
